FAERS Safety Report 9279184 (Version 1)
Quarter: 2013Q2

REPORT INFORMATION
  Report Type: Spontaneous
  Country: US (occurrence: US)
  Receive Date: 20130508
  Receipt Date: 20130508
  Transmission Date: 20140414
  Serious: Yes (Hospitalization)
  Sender: FDA-Public Use
  Company Number: US-BAYER-2013-056373

PATIENT
  Age: 42 Year
  Sex: Female
  Weight: 109.3 kg

DRUGS (11)
  1. YAZ [Suspect]
     Indication: DYSFUNCTIONAL UTERINE BLEEDING
  2. YAZ [Suspect]
     Indication: MENSTRUAL CYCLE MANAGEMENT
  3. GIANVI [Suspect]
  4. YASMIN [Suspect]
  5. IBUPROFEN [Concomitant]
     Indication: ARTHRALGIA
     Dosage: 200 MG, 2-4 TIMES EVERY OTHER DAY
     Route: 048
  6. DARVOCET [Concomitant]
     Route: 048
  7. TORADOL [Concomitant]
     Indication: PAIN
  8. BETA BLOCKING AGENTS [Concomitant]
  9. MOTRIN [Concomitant]
  10. METOPROLOL [Concomitant]
  11. PEPCID [Concomitant]

REACTIONS (1)
  - Pulmonary embolism [None]
